FAERS Safety Report 4868744-5 (Version None)
Quarter: 2005Q4

REPORT INFORMATION
  Report Type: 
  Country: None (occurrence: None)
  Receive Date: 20051223
  Receipt Date: 20051212
  Transmission Date: 20060501
  Serious: Yes (Death)
  Sender: FDA-Public Use
  Company Number: 2005168329

PATIENT
  Age: 59 Year
  Sex: Male
  Weight: 90 kg

DRUGS (3)
  1. HALCION [Suspect]
     Indication: SUICIDE ATTEMPT
     Dosage: 0.25 MG ORAL
     Route: 048
     Dates: start: 20051201
  2. TRAZODONE HCL [Suspect]
     Indication: SUICIDE ATTEMPT
     Dosage: 500 MG (100 MG) ORAL
     Route: 048
     Dates: start: 20051201
  3. INSULIN [Concomitant]

REACTIONS (1)
  - COMPLETED SUICIDE [None]
